FAERS Safety Report 13745627 (Version 1)
Quarter: 2017Q3

REPORT INFORMATION
  Report Type: Spontaneous
  Country: CN (occurrence: CN)
  Receive Date: 20170712
  Receipt Date: 20170712
  Transmission Date: 20171127
  Serious: Yes (Life-Threatening, Hospitalization)
  Sender: FDA-Public Use
  Company Number: CN-BRACCO-003494

PATIENT
  Age: 80 Year
  Sex: Female
  Weight: 81 kg

DRUGS (1)
  1. IOPAMIRO [Suspect]
     Active Substance: IOPAMIDOL
     Indication: ARTERIOGRAM CORONARY
     Dosage: 37 G
     Route: 042
     Dates: start: 20170522, end: 20170522

REACTIONS (4)
  - Chills [Recovered/Resolved]
  - Palpitations [Recovered/Resolved]
  - Dizziness [Recovered/Resolved]
  - Asthenia [Recovered/Resolved]

NARRATIVE: CASE EVENT DATE: 20170522
